FAERS Safety Report 23564881 (Version 1)
Quarter: 2024Q1

REPORT INFORMATION
  Report Type: Spontaneous
  Country: US (occurrence: US)
  Receive Date: 20240226
  Receipt Date: 20240226
  Transmission Date: 20240410
  Serious: No
  Sender: FDA-Public Use
  Company Number: US-Vifor (International) Inc.-VIT-2024-01316

PATIENT
  Age: 87 Year
  Sex: Female

DRUGS (16)
  1. VELTASSA [Suspect]
     Active Substance: PATIROMER
     Indication: Hyperkalaemia
     Dosage: MIX 1 PACKET INTO ONE THIRD CUP OF WATER AND DRINK ONCE A DAY
     Route: 048
     Dates: start: 20170329
  2. ASPIRIN [Concomitant]
     Active Substance: ASPIRIN
  3. BIOTIN [Concomitant]
     Active Substance: BIOTIN
  4. CLONIDINE [Concomitant]
     Active Substance: CLONIDINE
  5. ERGOCALCIFEROL [Concomitant]
     Active Substance: ERGOCALCIFEROL
  6. FUROSEMIDE [Concomitant]
     Active Substance: FUROSEMIDE
  7. GARLIC OIL [Concomitant]
     Active Substance: GARLIC OIL
  8. HYDRALAZINE [Concomitant]
     Active Substance: HYDRALAZINE HYDROCHLORIDE
  9. NITROGLYCERIN [Concomitant]
     Active Substance: NITROGLYCERIN
     Route: 058
  10. FISH OIL [Concomitant]
     Active Substance: FISH OIL
  11. PRAVASTATIN [Concomitant]
     Active Substance: PRAVASTATIN
  12. PROMETHAZINE [Concomitant]
     Active Substance: PROMETHAZINE HYDROCHLORIDE
  13. RANITIDINE [Concomitant]
     Active Substance: RANITIDINE
  14. TELMISARTAN [Concomitant]
     Active Substance: TELMISARTAN
  15. ZETIA [Concomitant]
     Active Substance: EZETIMIBE
  16. METOPROLOL TARTRATE [Concomitant]
     Active Substance: METOPROLOL TARTRATE

REACTIONS (1)
  - Blood pressure abnormal [Not Recovered/Not Resolved]
